FAERS Safety Report 7112060-8 (Version None)
Quarter: 2010Q4

REPORT INFORMATION
  Report Type: 
  Country: None (occurrence: None)
  Receive Date: 20101119
  Receipt Date: 20101108
  Transmission Date: 20110411
  Serious: Yes (Other)
  Sender: FDA-Public Use
  Company Number: CA-JNJFOC-20101103655

PATIENT
  Sex: Male
  Weight: 68.5 kg

DRUGS (1)
  1. REMICADE [Suspect]
     Indication: COLITIS ULCERATIVE
     Dosage: 10 MG/KG
     Route: 042

REACTIONS (1)
  - RHEUMATOID ARTHRITIS [None]
